FAERS Safety Report 18401127 (Version 2)
Quarter: 2020Q4

REPORT INFORMATION
  Report Type: Report from Study
  Country: KR (occurrence: KR)
  Receive Date: 20201019
  Receipt Date: 20201023
  Transmission Date: 20210114
  Serious: Yes (Death, Life-Threatening)
  Sender: FDA-Public Use
  Company Number: KR-DSJP-DSJ-2020-129893AA

PATIENT
  Age: 75 Year
  Sex: Female
  Weight: 57 kg

DRUGS (6)
  1. EDOXABAN [Suspect]
     Active Substance: EDOXABAN TOSYLATE
     Indication: PRODUCT USED FOR UNKNOWN INDICATION
     Dosage: 30 MG, QD
     Route: 048
     Dates: start: 20191126, end: 20200207
  2. LIPITOR [Concomitant]
     Active Substance: ATORVASTATIN CALCIUM
     Indication: HYPERTENSION
     Dosage: 1 DF, QD
     Route: 065
     Dates: start: 20200215
  3. CONBLOC [Concomitant]
     Indication: HYPERTENSION
     Dosage: UNK TAB, QD
     Route: 065
     Dates: start: 20191009
  4. INSULIN REGULAR                    /01223201/ [Concomitant]
     Active Substance: INSULIN BEEF
     Indication: DIABETES MELLITUS
     Dosage: 100, QD
     Route: 065
     Dates: start: 20200207
  5. PLAVIX [Concomitant]
     Active Substance: CLOPIDOGREL BISULFATE
     Indication: HYPERTENSION
     Dosage: 1 DF, QD
     Route: 065
     Dates: start: 20200215
  6. ASPIRIN ENTERIC COATED K.P. [Concomitant]
     Active Substance: ASPIRIN
     Indication: HYPERTENSION
     Dosage: 100 MG, QD
     Route: 065
     Dates: start: 20191010

REACTIONS (1)
  - Pneumonia [Fatal]

NARRATIVE: CASE EVENT DATE: 20200302
